FAERS Safety Report 7833597-X (Version None)
Quarter: 2011Q4

REPORT INFORMATION
  Report Type: 
  Country: None (occurrence: None)
  Receive Date: 20111020
  Receipt Date: 20111006
  Transmission Date: 20120403
  Serious: Yes (Death)
  Sender: FDA-Public Use
  Company Number: 2011P1009289

PATIENT
  Age: 17 Year
  Sex: Male

DRUGS (3)
  1. CARAFATE [Concomitant]
  2. FENTANYL [Suspect]
     Dosage: 1 PATCH; X1; INH
     Route: 055
     Dates: start: 20110930, end: 20110930
  3. ADDERALL XR 10 [Concomitant]

REACTIONS (1)
  - INTENTIONAL DRUG MISUSE [None]
